FAERS Safety Report 26081695 (Version 2)
Quarter: 2025Q4

REPORT INFORMATION
  Report Type: Spontaneous
  Country: US (occurrence: US)
  Receive Date: 20251124
  Receipt Date: 20251231
  Transmission Date: 20260118
  Serious: No
  Sender: LEO PHARM
  Company Number: US-LEO Pharma-384398

PATIENT
  Age: 58 Year
  Sex: Male

DRUGS (2)
  1. ADBRY [Suspect]
     Active Substance: TRALOKINUMAB-LDRM
     Indication: Eczema
     Dosage: 600 MG FOR THE LOADING DOSE THEN AT 300 MG EVERY 14 DAYS EVERY TWO WEEKS; TREATMENT IS ONGOING
     Route: 058
     Dates: start: 20251017
  2. ADBRY [Suspect]
     Active Substance: TRALOKINUMAB-LDRM
     Indication: Eczema
     Route: 058

REACTIONS (4)
  - Initial insomnia [Unknown]
  - Loss of personal independence in daily activities [Unknown]
  - Eczema [Unknown]
  - Drug ineffective [Unknown]
